FAERS Safety Report 22382474 (Version 3)
Quarter: 2023Q2

REPORT INFORMATION
  Report Type: Spontaneous
  Country: CA (occurrence: CA)
  Receive Date: 20230530
  Receipt Date: 20230620
  Transmission Date: 20230721
  Serious: Yes (Other)
  Sender: FDA-Public Use
  Company Number: CA-GLAXOSMITHKLINE-CA2023AMR021892

PATIENT

DRUGS (1)
  1. BENLYSTA [Suspect]
     Active Substance: BELIMUMAB
     Indication: Systemic lupus erythematosus
     Dosage: UNK

REACTIONS (7)
  - Cataract [Unknown]
  - Herpes zoster [Unknown]
  - Injection site pain [Unknown]
  - Feeling abnormal [Unknown]
  - Fatigue [Unknown]
  - Mobility decreased [Unknown]
  - Gout [Unknown]
